FAERS Safety Report 9017020 (Version 5)
Quarter: 2013Q2

REPORT INFORMATION
  Report Type: Spontaneous
  Country: HR (occurrence: HR)
  Receive Date: 20130117
  Receipt Date: 20130502
  Transmission Date: 20140414
  Serious: Yes (Hospitalization, Other)
  Sender: FDA-Public Use
  Company Number: HR-ABBOTT-13P-216-1033448-00

PATIENT
  Sex: Female

DRUGS (11)
  1. HUMIRA [Suspect]
     Indication: RHEUMATOID ARTHRITIS
     Route: 058
     Dates: start: 200902, end: 201210
  2. HUMIRA [Suspect]
     Route: 058
     Dates: end: 20130108
  3. ARAVA [Concomitant]
     Indication: RHEUMATOID ARTHRITIS
     Route: 048
     Dates: start: 20130108
  4. LUPOCET [Concomitant]
     Indication: PRODUCT USED FOR UNKNOWN INDICATION
     Dosage: 1-3 TIMES DAILY AS NEEDED
     Route: 048
  5. CALCIMED D3 [Concomitant]
     Indication: PRODUCT USED FOR UNKNOWN INDICATION
     Route: 048
  6. LOSARTIC PLUS [Concomitant]
     Indication: HYPERTENSION
     Route: 048
  7. VENTOLIN [Concomitant]
     Indication: PRODUCT USED FOR UNKNOWN INDICATION
     Dosage: 2 SPRAYS AS NEEDED 3 TIMES A DAY
     Route: 055
  8. FOLACIN [Concomitant]
     Indication: PRODUCT USED FOR UNKNOWN INDICATION
     Route: 048
  9. BISOBEL [Concomitant]
     Indication: HYPERTENSION
     Dosage: 1/2 TABLET
     Route: 048
  10. METHOTREXATE [Concomitant]
     Indication: RHEUMATOID ARTHRITIS
     Route: 058
     Dates: start: 2007, end: 20130108
  11. CALCIUM CARBONATE [Concomitant]
     Indication: PRODUCT USED FOR UNKNOWN INDICATION
     Route: 048
     Dates: start: 201207

REACTIONS (23)
  - Pulmonary hypertension [Unknown]
  - Pulmonary fibrosis [Unknown]
  - Rheumatoid arthritis [Unknown]
  - Hypertension [Unknown]
  - Joint swelling [Unknown]
  - Arthralgia [Unknown]
  - Drug intolerance [Unknown]
  - Blood uric acid increased [Unknown]
  - Dyspnoea [Unknown]
  - Thirst [Unknown]
  - Fatigue [Unknown]
  - Decreased appetite [Unknown]
  - Weight decreased [Unknown]
  - Back pain [Unknown]
  - Mucosal dryness [Unknown]
  - Joint range of motion decreased [Unknown]
  - Arthralgia [Unknown]
  - Palpitations [Unknown]
  - Nasopharyngitis [Unknown]
  - Connective tissue disorder [Unknown]
  - Lung disorder [Unknown]
  - Cough [Unknown]
  - Lung disorder [Unknown]
